FAERS Safety Report 9128411 (Version 2)
Quarter: 2013Q1

REPORT INFORMATION
  Report Type: Spontaneous
  Country: US (occurrence: US)
  Receive Date: 20130228
  Receipt Date: 20130322
  Transmission Date: 20140127
  Serious: Yes (Other)
  Sender: FDA-Public Use
  Company Number: PHEH2013US004724

PATIENT
  Age: 44 Year
  Sex: Female

DRUGS (1)
  1. GILENYA [Suspect]
     Indication: MULTIPLE SCLEROSIS
     Dosage: 0.5 MG, QD
     Route: 048
     Dates: start: 20121219

REACTIONS (6)
  - Loss of consciousness [Unknown]
  - Arthralgia [Unknown]
  - Fatigue [Unknown]
  - Local swelling [Unknown]
  - Back pain [Unknown]
  - Asthenia [Unknown]
